FAERS Safety Report 14302801 (Version 1)
Quarter: 2017Q4

REPORT INFORMATION
  Report Type: Spontaneous
  Country: CA (occurrence: CA)
  Receive Date: 20171219
  Receipt Date: 20171219
  Transmission Date: 20180321
  Serious: Yes (Hospitalization)
  Sender: FDA-Public Use
  Company Number: None

PATIENT
  Age: 32 Year
  Sex: Female
  Weight: 56.7 kg

DRUGS (6)
  1. DULOXETINE (PMS) 60MG [Suspect]
     Active Substance: DULOXETINE
     Indication: BACK PAIN
     Route: 048
     Dates: start: 20170408, end: 20170706
  2. CYMBALTA [Suspect]
     Active Substance: DULOXETINE HYDROCHLORIDE
     Route: 048
  3. ASTHMA INHALER [Concomitant]
     Active Substance: UNSPECIFIED INGREDIENT
  4. DULOXETINE (PMS) 30MG [Suspect]
     Active Substance: DULOXETINE
     Route: 048
  5. DULOXETINE (PMS) 60MG [Suspect]
     Active Substance: DULOXETINE
     Indication: NECK PAIN
     Route: 048
     Dates: start: 20170408, end: 20170706
  6. SALBUTAMOL [Concomitant]
     Active Substance: ALBUTEROL

REACTIONS (25)
  - Panic disorder [None]
  - Suicidal ideation [None]
  - Insomnia [None]
  - Chromaturia [None]
  - Tremor [None]
  - Fatigue [None]
  - Palpitations [None]
  - Pharyngeal oedema [None]
  - Dust allergy [None]
  - Dysgeusia [None]
  - Anxiety [None]
  - Nightmare [None]
  - Haemorrhage [None]
  - Dizziness [None]
  - Irritability [None]
  - Nausea [None]
  - Dyspnoea [None]
  - Speech disorder [None]
  - Crying [None]
  - Coordination abnormal [None]
  - Dysphagia [None]
  - Night sweats [None]
  - Decreased appetite [None]
  - Depression [None]
  - Hypoaesthesia [None]

NARRATIVE: CASE EVENT DATE: 20170709
